FAERS Safety Report 7940055-0 (Version None)
Quarter: 2011Q4

REPORT INFORMATION
  Report Type: 
  Country: None (occurrence: None)
  Receive Date: 20111125
  Receipt Date: 20111114
  Transmission Date: 20120403
  Serious: Yes (Hospitalization, Other)
  Sender: FDA-Public Use
  Company Number: IE-SANOFI-AVENTIS-2011SA076432

PATIENT
  Age: 41 Year
  Sex: Female
  Weight: 70.8 kg

DRUGS (12)
  1. CYCLIZINE [Concomitant]
     Dates: start: 20100812
  2. LANSOPRAZOLE [Concomitant]
     Dosage: START DATE 13 AUG 2010
  3. MOVIPREP [Concomitant]
     Dosage: DOSE: 1 SACHET
  4. LANSOPRAZOLE [Concomitant]
     Dosage: THERAPY START DATE 12 AUG 2010,100 MICROGRAM DAILY( MON TO FRIDAY)150 MICROGRAM DAILY
  5. DOCETAXEL [Suspect]
     Dosage: FORM: VIALDOSE LEVEL:60 MG/M2
     Route: 042
     Dates: start: 20100826
  6. CARBOPLATIN [Suspect]
     Dosage: FORM: VIALDOSE LEVEL:5 AUC
     Route: 042
     Dates: start: 20100826
  7. CARBOPLATIN [Suspect]
     Dosage: FORM: VIALDOSE LEVEL:6 AUC
     Route: 042
     Dates: start: 20100803
  8. LEVOTHYROXINE SODIUM [Concomitant]
     Dosage: 100 MICROGRAM DAILY( MON TO FRIDAY)150 MICROGRAM DAILY(SAT AND SUN)
     Dates: start: 20100813
  9. DOCETAXEL [Suspect]
     Dosage: FORM: VIALDOSE LEVEL:75 MG/M2:
     Route: 042
     Dates: start: 20100803
  10. TRASTUZUMAB [Suspect]
     Dosage: FORM: VIALFREQUENCY: 1 IN 1 TOTAL
     Route: 042
  11. TRASTUZUMAB [Suspect]
     Dosage: FORM: VIALDOSE LEVEL:6 MG/KG
     Route: 042
     Dates: start: 20100803
  12. TRASTUZUMAB [Suspect]
     Dosage: FORM: VIALDOSE LEVEL:6 MG/KG
     Route: 042
     Dates: start: 20100826

REACTIONS (7)
  - MYALGIA [None]
  - LETHARGY [None]
  - BACK PAIN [None]
  - CHILLS [None]
  - DECREASED APPETITE [None]
  - COLD SWEAT [None]
  - NEUTROPENIA [None]
